FAERS Safety Report 21390210 (Version 1)
Quarter: 2022Q3

REPORT INFORMATION
  Report Type: Spontaneous
  Country: FR (occurrence: FR)
  Receive Date: 20220929
  Receipt Date: 20220929
  Transmission Date: 20221027
  Serious: Yes (Death, Life-Threatening, Other)
  Sender: FDA-Public Use
  Company Number: FR-AMGEN-FRASP2022164807

PATIENT

DRUGS (13)
  1. CARFILZOMIB [Suspect]
     Active Substance: CARFILZOMIB
     Indication: Plasma cell myeloma
     Dosage: UNK
     Route: 065
  2. THALIDOMIDE [Concomitant]
     Active Substance: THALIDOMIDE
     Indication: Plasma cell myeloma
  3. LENALIDOMIDE [Concomitant]
     Active Substance: LENALIDOMIDE
     Indication: Plasma cell myeloma
  4. POMALIDOMIDE [Concomitant]
     Active Substance: POMALIDOMIDE
     Indication: Plasma cell myeloma
  5. BORTEZOMIB [Concomitant]
     Active Substance: BORTEZOMIB
     Indication: Plasma cell myeloma
  6. IXAZOMIB [Concomitant]
     Active Substance: IXAZOMIB
     Indication: Plasma cell myeloma
  7. DARATUMUMAB [Concomitant]
     Active Substance: DARATUMUMAB
     Indication: Plasma cell myeloma
  8. ISATUXIMAB [Concomitant]
     Active Substance: ISATUXIMAB
     Indication: Plasma cell myeloma
  9. TECLISTAMAB [Concomitant]
     Active Substance: TECLISTAMAB
     Indication: Plasma cell myeloma refractory
     Dosage: 1.5 MILLIGRAM/KILOGRAM, QWK (AFTER STEP-UP DOSES OF 0.06 MG AND 0.3 MG/KG) (21 DAYS)
     Route: 058
  10. TECLISTAMAB [Concomitant]
     Active Substance: TECLISTAMAB
     Dosage: 1.5 MILLIGRAM/KILOGRAM, QWK (AFTER STEP-UP DOSES OF 0.06 MG AND 0.3 MG/KG) (28 DAYS)
     Route: 058
  11. DEXAMETHASONE [Concomitant]
     Active Substance: DEXAMETHASONE
     Indication: Immune effector cell-associated neurotoxicity syndrome
     Dosage: 16 MILLIGRAM
  12. ACETAMINOPHEN [Concomitant]
     Active Substance: ACETAMINOPHEN
  13. DIPHENHYDRAMINE [Concomitant]
     Active Substance: DIPHENHYDRAMINE

REACTIONS (31)
  - Death [Fatal]
  - COVID-19 [Fatal]
  - Plasma cell myeloma [Fatal]
  - Immune effector cell-associated neurotoxicity syndrome [Unknown]
  - Seizure [Unknown]
  - Neurotoxicity [Unknown]
  - Infection [Unknown]
  - Adverse event [Unknown]
  - Meningitis bacterial [Unknown]
  - Hypogammaglobulinaemia [Unknown]
  - Cytokine release syndrome [Recovered/Resolved]
  - Bone pain [Unknown]
  - Lymphopenia [Unknown]
  - Back pain [Unknown]
  - Fatigue [Unknown]
  - Nausea [Unknown]
  - Constipation [Unknown]
  - Cough [Unknown]
  - Headache [Unknown]
  - Diarrhoea [Unknown]
  - Anaemia [Unknown]
  - Pneumonia [Unknown]
  - Arthralgia [Unknown]
  - Leukopenia [Unknown]
  - Pyrexia [Unknown]
  - Neutropenia [Unknown]
  - Thrombocytopenia [Unknown]
  - Pneumonia adenoviral [Unknown]
  - Therapy non-responder [Unknown]
  - Injection site erythema [Unknown]
  - Injection site reaction [Unknown]
